FAERS Safety Report 15483447 (Version 19)
Quarter: 2020Q3

REPORT INFORMATION
  Report Type: Spontaneous
  Country: CA (occurrence: CA)
  Receive Date: 20181010
  Receipt Date: 20200930
  Transmission Date: 20201102
  Serious: Yes (Other)
  Sender: FDA-Public Use
  Company Number: CA-CELLTRION INC.-2018CA020705

PATIENT

DRUGS (33)
  1. INFLECTRA [Suspect]
     Active Substance: INFLIXIMAB-DYYB
     Indication: PSORIATIC ARTHROPATHY
     Dosage: 3 MG/KG (438MG) AT 0, 2, 6 WEEKS AND MAINTENANCE EVERY 8 WEEKS
     Route: 042
     Dates: start: 20180625, end: 20180709
  2. INFLECTRA [Suspect]
     Active Substance: INFLIXIMAB-DYYB
     Dosage: 7.5 MG/KG, (1000 MG) EVERY 4 WEEKS ONCE, THEN EVERY 6 WEEKS
     Route: 042
     Dates: start: 20200709
  3. ACETAMINOPHEN. [Concomitant]
     Active Substance: ACETAMINOPHEN
     Indication: PREMEDICATION
     Dosage: 1000 MG, UNK
     Route: 048
     Dates: start: 20180709
  4. ACETAMINOPHEN. [Concomitant]
     Active Substance: ACETAMINOPHEN
     Dosage: 1000 MG, UNK
     Route: 048
     Dates: start: 20190123
  5. ACETAMINOPHEN. [Concomitant]
     Active Substance: ACETAMINOPHEN
     Dosage: 650 MG, UNK
     Dates: start: 20191105
  6. DIPHENHYDRAMINE. [Concomitant]
     Active Substance: DIPHENHYDRAMINE
     Indication: PREMEDICATION
     Dosage: 50 MG
     Route: 048
     Dates: start: 20180709
  7. INFLECTRA [Suspect]
     Active Substance: INFLIXIMAB-DYYB
     Dosage: 500 MG, UNK
     Route: 042
     Dates: start: 20180709
  8. INFLECTRA [Suspect]
     Active Substance: INFLIXIMAB-DYYB
     Dosage: 400 MG (4 VIALS) WEEK 6 THEN EVERY 8 WEEKS
     Route: 042
     Dates: start: 20181127, end: 20181127
  9. INFLECTRA [Suspect]
     Active Substance: INFLIXIMAB-DYYB
     Dosage: 700 MG, EVERY 6 WEEKS
     Route: 042
     Dates: start: 20191105
  10. INFLECTRA [Suspect]
     Active Substance: INFLIXIMAB-DYYB
     Dosage: 700 MG, EVERY 6 WEEKS
     Route: 042
     Dates: start: 20200312
  11. ACETAMINOPHEN. [Concomitant]
     Active Substance: ACETAMINOPHEN
     Dosage: 1000 MG, UNK
     Route: 048
     Dates: start: 20190306
  12. DIPHENHYDRAMINE. [Concomitant]
     Active Substance: DIPHENHYDRAMINE
     Dosage: 25 MG
     Dates: start: 20200709
  13. INFLECTRA [Suspect]
     Active Substance: INFLIXIMAB-DYYB
     Dosage: 700 MG, EVERY 6 WEEKS
     Route: 042
     Dates: start: 20200312
  14. METHOTREXATE. [Concomitant]
     Active Substance: METHOTREXATE
     Dosage: 25 MG, WEEKLY
     Route: 058
  15. DIPHENHYDRAMINE. [Concomitant]
     Active Substance: DIPHENHYDRAMINE
     Dosage: 25 MG, UNK
     Route: 048
     Dates: start: 20190306
  16. INFLECTRA [Suspect]
     Active Substance: INFLIXIMAB-DYYB
     Dosage: 700 MG, EVERY 6 WEEKS
     Route: 042
     Dates: start: 20190926
  17. INFLECTRA [Suspect]
     Active Substance: INFLIXIMAB-DYYB
     Dosage: 7.5 MG/KG, (1000 MG) EVERY 4 WEEKS ONCE, THEN EVERY 6 WEEKS
     Route: 042
     Dates: start: 20200709
  18. INFLECTRA [Suspect]
     Active Substance: INFLIXIMAB-DYYB
     Dosage: 700 MG, EVERY 6 WEEKS
     Route: 042
     Dates: start: 20190306
  19. INFLECTRA [Suspect]
     Active Substance: INFLIXIMAB-DYYB
     Dosage: 7.5 MG/KG, (1000 MG) EVERY 4 WEEKS ONCE, THEN EVERY 6 WEEKS
     Route: 042
     Dates: start: 20200709
  20. DIPHENHYDRAMINE. [Concomitant]
     Active Substance: DIPHENHYDRAMINE
     Dosage: 25 MG
     Dates: start: 20191105
  21. INFLECTRA [Suspect]
     Active Substance: INFLIXIMAB-DYYB
     Dosage: 700 MG, EVERY 8 WEEKS
     Route: 042
     Dates: start: 20190123
  22. INFLECTRA [Suspect]
     Active Substance: INFLIXIMAB-DYYB
     Dosage: 700 MG, EVERY 6 WEEKS
     Route: 042
     Dates: start: 20190926
  23. INFLECTRA [Suspect]
     Active Substance: INFLIXIMAB-DYYB
     Dosage: 700 MG, EVERY 6 WEEKS
     Route: 042
     Dates: start: 20200312
  24. METHOTREXATE. [Concomitant]
     Active Substance: METHOTREXATE
     Indication: PSORIATIC ARTHROPATHY
     Dosage: 10 MG, WEEKLY
     Route: 048
  25. DIPHENHYDRAMINE. [Concomitant]
     Active Substance: DIPHENHYDRAMINE
     Dosage: 25 MG, UNK
     Route: 048
     Dates: start: 20190123
  26. INFLECTRA [Suspect]
     Active Substance: INFLIXIMAB-DYYB
     Dosage: 400 MG (4 VIALS) WEEK 6 THEN EVERY 8 WEEKS
     Route: 042
     Dates: start: 20180807, end: 20181127
  27. INFLECTRA [Suspect]
     Active Substance: INFLIXIMAB-DYYB
     Dosage: 700 MG, EVERY 6 WEEKS
     Route: 042
     Dates: start: 20190306
  28. INFLECTRA [Suspect]
     Active Substance: INFLIXIMAB-DYYB
     Dosage: 700 MG, EVERY 6 WEEKS
     Route: 042
     Dates: start: 20190617
  29. INFLECTRA [Suspect]
     Active Substance: INFLIXIMAB-DYYB
     Dosage: 7.5 MG/KG, (1000 MG) EVERY 4 WEEKS ONCE, THEN EVERY 6 WEEKS
     Route: 042
     Dates: start: 20200709
  30. INFLECTRA [Suspect]
     Active Substance: INFLIXIMAB-DYYB
     Dosage: 7.5 MG/KG, (1000 MG) EVERY 4 WEEKS ONCE, THEN EVERY 6 WEEKS
     Route: 042
     Dates: start: 20200820, end: 20200820
  31. SULFASALAZINE. [Concomitant]
     Active Substance: SULFASALAZINE
     Dosage: 1 G, 2X/DAY
     Route: 065
  32. ACETAMINOPHEN. [Concomitant]
     Active Substance: ACETAMINOPHEN
     Dosage: 650 UNK
     Dates: start: 20200709
  33. INFLECTRA [Suspect]
     Active Substance: INFLIXIMAB-DYYB
     Dosage: 700 MG, EVERY 6 WEEKS
     Route: 042
     Dates: start: 20200612

REACTIONS (13)
  - Diabetes mellitus [Unknown]
  - Therapeutic response shortened [Unknown]
  - Off label use [Unknown]
  - Fungal infection [Unknown]
  - Therapeutic product effect incomplete [Unknown]
  - Nasopharyngitis [Not Recovered/Not Resolved]
  - Condition aggravated [Unknown]
  - Product use issue [Unknown]
  - Blood pressure increased [Unknown]
  - Nasal congestion [Not Recovered/Not Resolved]
  - Infection [Unknown]
  - Intentional product use issue [Unknown]
  - Body temperature decreased [Unknown]

NARRATIVE: CASE EVENT DATE: 20190306
